FAERS Safety Report 6581954-4 (Version None)
Quarter: 2010Q1

REPORT INFORMATION
  Report Type: 
  Country: None (occurrence: None)
  Receive Date: 20100215
  Receipt Date: 20100204
  Transmission Date: 20100710
  Serious: Yes (Other)
  Sender: FDA-Public Use
  Company Number: US-ELI_LILLY_AND_COMPANY-US201001002666

PATIENT
  Sex: Female

DRUGS (8)
  1. HUMALOG [Suspect]
     Indication: DIABETES MELLITUS
     Dosage: UNK, AS NEEDED
     Dates: start: 20060101
  2. HUMULIN R [Suspect]
     Indication: DIABETES MELLITUS
     Dosage: UNK, AS NEEDED
     Dates: start: 20081101, end: 20090101
  3. HUMULIN R [Suspect]
     Dosage: UNK, AS NEEDED
  4. HUMULIN N [Suspect]
     Indication: DIABETES MELLITUS
     Dosage: 23 U, EACH EVENING
     Dates: start: 20060101
  5. NORVASC [Concomitant]
     Dosage: 10 MG, UNK
  6. MICARDIS [Concomitant]
     Dosage: 40 MG, UNK
  7. FUROSEMIDE [Concomitant]
     Dosage: 40 MG, UNK
  8. ZOCOR [Concomitant]
     Dosage: 40 MG, DAILY (1/D)

REACTIONS (8)
  - BLOOD GLUCOSE DECREASED [None]
  - BLOOD GLUCOSE INCREASED [None]
  - BLOOD PRESSURE DECREASED [None]
  - DRUG DISPENSING ERROR [None]
  - EYE HAEMORRHAGE [None]
  - MALAISE [None]
  - VISION BLURRED [None]
  - WRONG DRUG ADMINISTERED [None]
